APPROVED DRUG PRODUCT: SODIUM POLYSTYRENE SULFONATE
Active Ingredient: SODIUM POLYSTYRENE SULFONATE
Strength: 15GM/60ML
Dosage Form/Route: SUSPENSION;ORAL, RECTAL
Application: A214912 | Product #001 | TE Code: AA
Applicant: LYNE LABORATORIES INC
Approved: Jun 10, 2025 | RLD: No | RS: No | Type: RX